FAERS Safety Report 7145282-0 (Version None)
Quarter: 2010Q4

REPORT INFORMATION
  Report Type: 
  Country: None (occurrence: None)
  Receive Date: 20101208
  Receipt Date: 20101203
  Transmission Date: 20110411
  Serious: Yes (Hospitalization, Other)
  Sender: FDA-Public Use
  Company Number: US-SHIRE-ALL1-2010-06321

PATIENT
  Sex: Female
  Weight: 72.562 kg

DRUGS (2)
  1. FOSRENOL [Suspect]
     Indication: HYPERPHOSPHATAEMIA
     Dosage: 1000 MG, AFTER EACH MEAL
     Route: 048
     Dates: start: 20090101
  2. UNSPECIFIED SLEEPING PILL [Suspect]
     Indication: PRODUCT USED FOR UNKNOWN INDICATION
     Dosage: UNK UNK, UNKNOWN
     Route: 048

REACTIONS (9)
  - BLISTER [None]
  - CHEST PAIN [None]
  - GASTRITIS [None]
  - HYPOTENSION [None]
  - OEDEMA PERIPHERAL [None]
  - OESOPHAGITIS [None]
  - SUPRAVENTRICULAR TACHYCARDIA [None]
  - UNRESPONSIVE TO STIMULI [None]
  - VASCULAR GRAFT COMPLICATION [None]
